FAERS Safety Report 16163141 (Version 1)
Quarter: 2019Q2

REPORT INFORMATION
  Report Type: Report from Study
  Country: NL (occurrence: NL)
  Receive Date: 20190405
  Receipt Date: 20190405
  Transmission Date: 20190711
  Serious: Yes (Hospitalization, Other)
  Sender: FDA-Public Use
  Company Number: NL-AMGEN-NLDSL2019051665

PATIENT
  Age: 87 Year
  Sex: Female

DRUGS (2)
  1. ARANESP [Suspect]
     Active Substance: DARBEPOETIN ALFA
     Dosage: 150 MICROGRAM, QWK
     Route: 058
  2. ARANESP [Suspect]
     Active Substance: DARBEPOETIN ALFA
     Indication: MYELODYSPLASTIC SYNDROME
     Dosage: 150 MICROGRAM, QWK
     Route: 058

REACTIONS (4)
  - Weight decreased [Unknown]
  - Fatigue [Unknown]
  - Hallucination [Recovered/Resolved]
  - Bradyarrhythmia [Unknown]

NARRATIVE: CASE EVENT DATE: 201903
